FAERS Safety Report 10424700 (Version 5)
Quarter: 2015Q2

REPORT INFORMATION
  Report Type: Report from Study
  Country: US (occurrence: US)
  Receive Date: 20140902
  Receipt Date: 20150629
  Transmission Date: 20150821
  Serious: Yes (Other)
  Sender: FDA-Public Use
  Company Number: US-SA-2014SA089486

PATIENT
  Age: 48 Year
  Sex: Female

DRUGS (1)
  1. AUBAGIO [Suspect]
     Active Substance: TERIFLUNOMIDE
     Indication: MULTIPLE SCLEROSIS
     Route: 048
     Dates: start: 20140619

REACTIONS (27)
  - Irritability [Unknown]
  - Dysphemia [Unknown]
  - Fatigue [Unknown]
  - Dizziness [Unknown]
  - Hot flush [Unknown]
  - Hypokinesia [Unknown]
  - Insomnia [Unknown]
  - Blindness [Unknown]
  - Nausea [Unknown]
  - Head injury [Unknown]
  - Temperature intolerance [Unknown]
  - Paraesthesia [Unknown]
  - Balance disorder [Unknown]
  - Fall [Unknown]
  - Abdominal pain upper [Unknown]
  - Vision blurred [Unknown]
  - Pain in extremity [Unknown]
  - Pain [Unknown]
  - Loss of consciousness [Unknown]
  - Headache [Recovering/Resolving]
  - Swelling [Unknown]
  - Asthenia [Unknown]
  - Feeling of body temperature change [Unknown]
  - Dry skin [Unknown]
  - Pruritus [Unknown]
  - Diarrhoea [Unknown]
  - Vertigo [Unknown]

NARRATIVE: CASE EVENT DATE: 201503
